FAERS Safety Report 24294089 (Version 1)
Quarter: 2024Q3

REPORT INFORMATION
  Report Type: Spontaneous
  Country: US (occurrence: None)
  Receive Date: 20240906
  Receipt Date: 20240906
  Transmission Date: 20241016
  Serious: No
  Sender: DOMPE FARMACEUTICI
  Company Number: US-FARMAPROD-202308-202404-1364

PATIENT
  Age: 60 Year
  Sex: Female
  Weight: 47.54 kg

DRUGS (16)
  1. OXERVATE [Suspect]
     Active Substance: CENEGERMIN-BKBJ
     Indication: Neurotrophic keratopathy
     Route: 047
     Dates: start: 20240409
  2. MURO-128 [Concomitant]
  3. BOTOX [Concomitant]
     Active Substance: ONABOTULINUMTOXINA
     Dosage: VIAL
  4. CLONAZEPAM [Concomitant]
     Active Substance: CLONAZEPAM
  5. BELSOMRA [Concomitant]
     Active Substance: SUVOREXANT
  6. HUMALOG [Concomitant]
     Active Substance: INSULIN LISPRO
     Dosage: 100/ML UNITS
  7. BAQSIMI [Concomitant]
     Active Substance: GLUCAGON
  8. POTASSIUM CHLORIDE [Concomitant]
     Active Substance: POTASSIUM CHLORIDE
  9. SOLIFENACIN SUCCINATE [Concomitant]
     Active Substance: SOLIFENACIN SUCCINATE
  10. NAPROXEN [Concomitant]
     Active Substance: NAPROXEN
  11. FUROSEMIDE [Concomitant]
     Active Substance: FUROSEMIDE
  12. NURTEC ODT [Concomitant]
     Active Substance: RIMEGEPANT SULFATE
     Dosage: DISINTEGRATING
  13. TOUJEO MAX [Concomitant]
     Active Substance: INSULIN GLARGINE
  14. GVOKE HYPOPEN 2-PACK [Concomitant]
  15. EMGALITY [Concomitant]
     Active Substance: GALCANEZUMAB-GNLM
     Dosage: PEN INJECTOR
  16. ZALEPLON [Concomitant]
     Active Substance: ZALEPLON

REACTIONS (7)
  - Eye swelling [Unknown]
  - Foreign body sensation in eyes [Unknown]
  - Vision blurred [Recovering/Resolving]
  - Overdose [Unknown]
  - Device use issue [Unknown]
  - Intentional product misuse [Unknown]
  - Dry eye [Unknown]

NARRATIVE: CASE EVENT DATE: 20240401
